FAERS Safety Report 4487594-5 (Version None)
Quarter: 2004Q4

REPORT INFORMATION
  Report Type: 
  Country: None (occurrence: None)
  Receive Date: 20041027
  Receipt Date: 20041027
  Transmission Date: 20050328
  Serious: No
  Sender: FDA-Public Use
  Company Number: None

PATIENT
  Age: 80 Year
  Sex: Female
  Weight: 43.5 kg

DRUGS (1)
  1. GATIFLOXACIN [Suspect]
     Indication: PNEUMONIA
     Dosage: 400 MG, NOW, IV
     Route: 042
     Dates: start: 20040829, end: 20040829

REACTIONS (1)
  - GRAND MAL CONVULSION [None]
